FAERS Safety Report 7933741 (Version 3)
Quarter: 2014Q2

REPORT INFORMATION
  Report Type: Spontaneous
  Country: US (occurrence: US)
  Receive Date: 20110506
  Receipt Date: 20140506
  Transmission Date: 20141212
  Serious: Yes (Hospitalization, Other)
  Sender: FDA-Public Use
  Company Number: US-ROCHE-747597

PATIENT
  Age: 15 Year
  Sex: Male
  Weight: 54.4 kg

DRUGS (2)
  1. ACCUTANE [Suspect]
     Indication: ACNE
     Route: 065
     Dates: start: 19970101, end: 19971201
  2. ACCUTANE [Suspect]
     Route: 065
     Dates: start: 199801, end: 199809

REACTIONS (14)
  - Crohn^s disease [Unknown]
  - Inflammatory bowel disease [Unknown]
  - Gastrointestinal injury [Unknown]
  - Depression [Unknown]
  - Suicidal ideation [Unknown]
  - Mental disorder [Unknown]
  - Rectal fissure [Unknown]
  - Fracture [Unknown]
  - Oropharyngeal pain [Unknown]
  - Cough [Unknown]
  - Epistaxis [Unknown]
  - Gastroenteritis [Unknown]
  - Contusion [Unknown]
  - Nasal congestion [Unknown]
